FAERS Safety Report 7624536-5 (Version None)
Quarter: 2011Q3

REPORT INFORMATION
  Report Type: 
  Country: None (occurrence: None)
  Receive Date: 20110720
  Receipt Date: 20110718
  Transmission Date: 20111222
  Serious: Yes (Death)
  Sender: FDA-Public Use
  Company Number: IT-ASTRAZENECA-2011SE41644

PATIENT
  Age: 30610 Day
  Sex: Female

DRUGS (9)
  1. PROVISACOR [Suspect]
     Indication: HYPERCHOLESTEROLAEMIA
     Route: 048
     Dates: start: 20110101, end: 20110530
  2. SPIRONOLATTONE [Concomitant]
     Route: 048
  3. LISINOPRIL DIIDRATO [Concomitant]
     Route: 048
  4. WARFARIN SODIUM [Concomitant]
     Route: 048
  5. CALCIUM CARBONATE / CHOLECALCIFEROL [Concomitant]
     Route: 048
  6. FUROSEMIDE [Concomitant]
     Route: 048
  7. PREDNISONE [Concomitant]
     Route: 048
  8. ESOMEPRAZOLE MAGNESIUM TRIHYDRATE [Concomitant]
     Route: 048
  9. ACID DISODIUM SALT CLODRONATE [Concomitant]
     Route: 030

REACTIONS (1)
  - RENAL FAILURE ACUTE [None]
